FAERS Safety Report 12100818 (Version 1)
Quarter: 2016Q1

REPORT INFORMATION
  Report Type: Spontaneous
  Country: US (occurrence: US)
  Receive Date: 20160222
  Receipt Date: 20160222
  Transmission Date: 20160526
  Serious: Yes (Other)
  Sender: FDA-Public Use
  Company Number: US-BAYER-2016-029017

PATIENT

DRUGS (3)
  1. BAYER LOW DOSE [Suspect]
     Active Substance: ASPIRIN
     Indication: CARDIAC FAILURE CONGESTIVE
     Dosage: 81 MG, QD
     Route: 048
  2. BAYER LOW DOSE [Suspect]
     Active Substance: ASPIRIN
     Indication: BUNDLE BRANCH BLOCK LEFT
  3. BAYER LOW DOSE [Suspect]
     Active Substance: ASPIRIN
     Indication: MITRAL VALVE PROLAPSE

REACTIONS (4)
  - Mitral valve prolapse [None]
  - Bundle branch block [None]
  - Cardiac failure congestive [None]
  - Product use issue [None]
